FAERS Safety Report 13165766 (Version 1)
Quarter: 2017Q1

REPORT INFORMATION
  Report Type: Spontaneous
  Country: US (occurrence: US)
  Receive Date: 20170126
  Receipt Date: 20170126
  Transmission Date: 20170428
  Serious: Yes (Hospitalization)
  Sender: FDA-Public Use
  Company Number: None

PATIENT
  Age: 91 Year
  Sex: Male
  Weight: 65.6 kg

DRUGS (1)
  1. DABIGATRAN [Suspect]
     Active Substance: DABIGATRAN
     Indication: ATRIAL FIBRILLATION
     Route: 048
     Dates: start: 20120621, end: 20120712

REACTIONS (4)
  - Constipation [None]
  - Diverticulum [None]
  - Gastric haemorrhage [None]
  - Haematochezia [None]

NARRATIVE: CASE EVENT DATE: 20120712
